FAERS Safety Report 6840282-X (Version None)
Quarter: 2010Q2

REPORT INFORMATION
  Report Type: 
  Country: None (occurrence: None)
  Receive Date: 20100629
  Receipt Date: 20100422
  Transmission Date: 20101027
  Serious: No
  Sender: FDA-Public Use
  Company Number: US-WYE-H14772810

PATIENT
  Age: 41 Year
  Sex: Female
  Weight: 68.1 kg

DRUGS (1)
  1. PRISTIQ [Suspect]
     Indication: DEPRESSION
     Dosage: 50 MG 1X PER 1 DAY, ORAL
     Route: 048
     Dates: start: 20100420, end: 20100421

REACTIONS (2)
  - DISTURBANCE IN ATTENTION [None]
  - FEELING ABNORMAL [None]
